FAERS Safety Report 6730426 (Version 11)
Quarter: 2013Q1

REPORT INFORMATION
  Report Type: Report from Study
  Country: JP (occurrence: JP)
  Receive Date: 20080819
  Receipt Date: 20130301
  Transmission Date: 20140127
  Serious: Yes (Hospitalization)
  Sender: FDA-Public Use
  Company Number: JP-BRISTOL-MYERS SQUIBB COMPANY-13971361

PATIENT
  Age: 40 Year
  Sex: Male

DRUGS (10)
  1. STOCRIN TABS [Suspect]
     Indication: HIV INFECTION
     Dosage: INTERR ON 21DEC04.14JUN-21DEC04(191D).RESTARTED 09DEC05-11JUL07;580D,17JUL09-16OCT09-30SEP10
     Route: 048
     Dates: start: 20040614, end: 20100930
  2. REYATAZ CAPS [Suspect]
     Indication: HIV INFECTION
     Dosage: INTERRUPTED ON 21JAN05;32D. RESTARTED ON 22JUN05. DISCONTINUED ON 10MAY07;688D
     Route: 048
     Dates: start: 20041221, end: 20070510
  3. EPIVIR [Suspect]
     Indication: HIV INFECTION
     Dosage: TABS. 150MGBID 22JUL05.INTERRUPTED ON 02AUG05.300MG/DAY FROM 03AUG05.?DISCONTINUED ON 13DEC07
     Route: 048
     Dates: start: 20050722, end: 20071213
  4. NORVIR [Suspect]
     Indication: HIV INFECTION
     Dosage: CAPS. INTERRUPTED ON 21JAN05;32D.RESTARTED ON 22JUN05-10MAY07;688D,19JAN2011-30-JUN-2011
     Route: 048
     Dates: start: 20041221
  5. VIREAD [Suspect]
     Indication: HIV INFECTION
     Dosage: TABS
     Route: 048
     Dates: start: 20050802, end: 20071213
  6. COMBIVIR [Suspect]
     Indication: HIV INFECTION
     Dosage: INTERRUPTED ON 21JAN05;253D. RESTARTED ON 22JUN05-22JUL05;31D
     Dates: start: 20040514, end: 20050722
  7. KALETRA [Suspect]
     Indication: HIV INFECTION
     Dosage: TABS. INTERRUPTED ON 30MAY04;17D. RESTARTED ON 11MAY07;DISCONTINUED ON 16OCT09;890D
     Route: 048
     Dates: start: 20040514, end: 20091016
  8. RETROVIR [Suspect]
     Route: 065
     Dates: start: 20050722, end: 20050802
  9. ISENTRESS [Suspect]
     Indication: HIV INFECTION
     Dosage: 400MGTAB ?INITIATED ON 16-OCT-2009
     Route: 048
     Dates: start: 20091016, end: 20100930
  10. TRUVADA [Suspect]
     Indication: HIV INFECTION
     Dosage: INITIATED ON 14-DEC-2007-01OCT10;1023D, 1 DF =1 TABLET DAILY,01JUL11-ONG
     Route: 048
     Dates: start: 20071214, end: 20101001

REACTIONS (1)
  - Diabetes mellitus [Not Recovered/Not Resolved]
